FAERS Safety Report 5691084-1 (Version None)
Quarter: 2008Q2

REPORT INFORMATION
  Report Type: 
  Country: None (occurrence: None)
  Receive Date: 20080401
  Receipt Date: 20080325
  Transmission Date: 20081010
  Serious: Yes (Disabling, Other)
  Sender: FDA-Public Use
  Company Number: CA-BOEHRINGER INGELHEIM GMBH, GERMANY-2008-DE-01740GD

PATIENT
  Age: 48 Year
  Sex: Female

DRUGS (4)
  1. PRAMIPEXOLE DIHYDROCHLORIDE [Suspect]
     Indication: PARKINSON'S DISEASE
  2. LEVODOPA [Suspect]
     Indication: PARKINSON'S DISEASE
  3. ENTACAPONE [Suspect]
     Indication: PARKINSON'S DISEASE
  4. SELEGILINE HYDROCHLORIDE [Suspect]
     Indication: PARKINSON'S DISEASE

REACTIONS (4)
  - CRYING [None]
  - DRUG INEFFECTIVE [None]
  - DYSKINESIA [None]
  - ON AND OFF PHENOMENON [None]
